FAERS Safety Report 9450418 (Version 1)
Quarter: 2013Q3

REPORT INFORMATION
  Report Type: Spontaneous
  Country: US (occurrence: US)
  Receive Date: 20130809
  Receipt Date: 20130809
  Transmission Date: 20140515
  Serious: Yes (Other)
  Sender: FDA-Public Use
  Company Number: US-PFIZER INC-2013230499

PATIENT
  Age: 65 Year
  Sex: Female
  Weight: 98.87 kg

DRUGS (6)
  1. CELEBREX [Suspect]
     Indication: ARTHRITIS
     Dosage: 200 MG, 1X/DAY
  2. LYRICA [Suspect]
     Indication: NEUROPATHY PERIPHERAL
     Dosage: 75 MG, 2X/DAY
  3. LYRICA [Suspect]
     Indication: NEURALGIA
     Dosage: 150 MG, 2X/DAY
     Dates: start: 200709
  4. LYRICA [Suspect]
     Indication: CONVULSION
  5. LISINOPRIL [Concomitant]
     Indication: HYPERTENSION
     Dosage: 10 MG, 1X/DAY
  6. HYDROCHLOROTHIAZIDE/TRIAMTERENE [Concomitant]
     Indication: HYPERTENSION
     Dosage: HYDROCHLOROTHIAZIDE 25MG/TRIAMTERENE 37.5MG, 1X/DAY

REACTIONS (2)
  - Spinal column stenosis [Unknown]
  - Pain [Unknown]
